FAERS Safety Report 10525703 (Version 14)
Quarter: 2016Q1

REPORT INFORMATION
  Report Type: Report from Study
  Country: CA (occurrence: CA)
  Receive Date: 20141017
  Receipt Date: 20160309
  Transmission Date: 20160525
  Serious: Yes (Death, Hospitalization, Other)
  Sender: FDA-Public Use
  Company Number: PHHY2013CA022419

PATIENT
  Age: 56 Year
  Sex: Female

DRUGS (2)
  1. SANDOSTATIN LAR DEPOT [Suspect]
     Active Substance: OCTREOTIDE ACETATE
     Indication: CARCINOID TUMOUR
     Dosage: 60 MG, QMO (EVERY 4 WEEKS)
     Route: 030
     Dates: start: 20070311
  2. SANDOSTATIN LAR DEPOT [Suspect]
     Active Substance: OCTREOTIDE ACETATE
     Dosage: 60 MG, EVERY 2 WEEKS
     Route: 030
     Dates: end: 20160226

REACTIONS (27)
  - Tumour compression [Unknown]
  - Blister infected [Unknown]
  - Injection site mass [Unknown]
  - Biliary tract infection [Unknown]
  - Neoplasm [Unknown]
  - Blood pressure systolic increased [Unknown]
  - Oedema peripheral [Unknown]
  - Thrombosis [Unknown]
  - Needle issue [Unknown]
  - Inappropriate schedule of drug administration [Unknown]
  - Haematoma [Unknown]
  - Granuloma [Unknown]
  - Pain [Unknown]
  - Heart rate decreased [Unknown]
  - Oedema [Unknown]
  - Flushing [Unknown]
  - Underdose [Unknown]
  - Yellow skin [Unknown]
  - Death [Fatal]
  - Pyrexia [Unknown]
  - Diarrhoea [Not Recovered/Not Resolved]
  - Blood pressure decreased [Unknown]
  - 5-hydroxyindolacetic acid increased [Unknown]
  - Blood pressure diastolic decreased [Unknown]
  - Malabsorption from injection site [Unknown]
  - Wrong technique in product usage process [Unknown]
  - Injection site haemorrhage [Unknown]

NARRATIVE: CASE EVENT DATE: 201301
